FAERS Safety Report 19443359 (Version 1)
Quarter: 2021Q2

REPORT INFORMATION
  Report Type: Spontaneous
  Country: US (occurrence: US)
  Receive Date: 20210621
  Receipt Date: 20210621
  Transmission Date: 20210717
  Serious: Yes (Life-Threatening, Hospitalization, Other)
  Sender: FDA-Public Use
  Company Number: US-HIKMA PHARMACEUTICALS USA INC.-US-H14001-21-02740

PATIENT
  Age: 18 Year
  Sex: Male

DRUGS (11)
  1. PREDNISONE. [Suspect]
     Active Substance: PREDNISONE
     Indication: ACUTE LYMPHOCYTIC LEUKAEMIA
     Dosage: DAY 1, 29, 57
     Route: 048
     Dates: start: 20200727
  2. MERCAPTOPURINE. [Suspect]
     Active Substance: MERCAPTOPURINE
     Indication: ACUTE LYMPHOCYTIC LEUKAEMIA
     Dosage: EVERY BEDTIME
     Route: 048
     Dates: start: 20191015, end: 20210503
  3. MERCAPTOPURINE. [Suspect]
     Active Substance: MERCAPTOPURINE
     Dosage: EVERY BEDTIME
     Route: 048
     Dates: start: 20210510
  4. METHOTREXATE. [Suspect]
     Active Substance: METHOTREXATE
     Indication: ACUTE LYMPHOCYTIC LEUKAEMIA
     Route: 037
     Dates: start: 20191014
  5. VINCRISTINE [Suspect]
     Active Substance: VINCRISTINE
     Dosage: Q29D
     Route: 042
     Dates: start: 20210514
  6. INCB018424 [Suspect]
     Active Substance: RUXOLITINIB
     Indication: ACUTE LYMPHOCYTIC LEUKAEMIA
     Route: 048
     Dates: start: 20191028, end: 20210503
  7. INCB018424 [Suspect]
     Active Substance: RUXOLITINIB
     Route: 048
     Dates: start: 20210510
  8. VINCRISTINE [Suspect]
     Active Substance: VINCRISTINE
     Indication: ACUTE LYMPHOCYTIC LEUKAEMIA
     Dosage: Q29D
     Route: 042
     Dates: start: 20191028, end: 20210503
  9. METHOTREXATE. [Suspect]
     Active Substance: METHOTREXATE
     Indication: ACUTE LYMPHOCYTIC LEUKAEMIA
     Route: 048
     Dates: start: 20200824, end: 20210503
  10. PREDNISONE. [Suspect]
     Active Substance: PREDNISONE
     Dosage: DAY 1, 29, 57
     Route: 048
     Dates: start: 20210510
  11. METHOTREXATE. [Suspect]
     Active Substance: METHOTREXATE
     Route: 048
     Dates: start: 20210510

REACTIONS (10)
  - Lung consolidation [Unknown]
  - Condition aggravated [Unknown]
  - Atelectasis [Unknown]
  - Pneumonia [Recovered/Resolved]
  - Total lung capacity decreased [Unknown]
  - Respiratory distress [Unknown]
  - Interstitial lung disease [Unknown]
  - Cough [Unknown]
  - Pneumocystis jirovecii pneumonia [Recovered/Resolved]
  - Chest pain [Unknown]

NARRATIVE: CASE EVENT DATE: 20210502
